FAERS Safety Report 16005217 (Version 1)
Quarter: 2019Q1

REPORT INFORMATION
  Report Type: Spontaneous
  Country: US (occurrence: US)
  Receive Date: 20190226
  Receipt Date: 20190226
  Transmission Date: 20190418
  Serious: No
  Sender: FDA-Public Use
  Company Number: US-PFIZER INC-2019081264

PATIENT
  Sex: Female

DRUGS (2)
  1. GABAPENTIN. [Suspect]
     Active Substance: GABAPENTIN
     Dosage: 500 MG, 1X/DAY (EVERY NIGHT AT BEDTIME)/(400 MILLIGRAMS AT BEDTIME, AND A 100 MIG CAPSULE HAS BEEN A
  2. GABAPENTIN. [Suspect]
     Active Substance: GABAPENTIN
     Indication: PAIN
     Dosage: 100 MG, 1X/DAY (BEDTIME)

REACTIONS (3)
  - Drug ineffective for unapproved indication [Unknown]
  - Balance disorder [Unknown]
  - Dizziness [Unknown]
